FAERS Safety Report 5335643-4 (Version None)
Quarter: 2007Q2

REPORT INFORMATION
  Report Type: 
  Country: None (occurrence: None)
  Receive Date: 20070322
  Receipt Date: 20070110
  Transmission Date: 20071010
  Serious: No
  Sender: FDA-Public Use
  Company Number: 2007US000107

PATIENT
  Age: 84 Year
  Sex: Male

DRUGS (1)
  1. VESICARE [Suspect]
     Indication: DRUG USE FOR UNKNOWN INDICATION
     Dosage: 5 MG, UID/QD, ORAL
     Route: 048

REACTIONS (4)
  - BLADDER SPASM [None]
  - POLLAKIURIA [None]
  - RENAL PAIN [None]
  - SCROTAL PAIN [None]
